FAERS Safety Report 6475359-4 (Version None)
Quarter: 2009Q4

REPORT INFORMATION
  Report Type: 
  Country: None (occurrence: None)
  Receive Date: 20091204
  Receipt Date: 20091125
  Transmission Date: 20100525
  Serious: Yes (Hospitalization)
  Sender: FDA-Public Use
  Company Number: BR-JNJFOC-20091108086

PATIENT
  Age: 76 Year
  Sex: Male

DRUGS (3)
  1. INVEGA [Suspect]
     Indication: SLEEP DISORDER THERAPY
     Route: 048
  2. PROLOPA [Concomitant]
     Indication: PARKINSON'S DISEASE
  3. BIO ANTIOXIDANT [Concomitant]
     Indication: PARKINSON'S DISEASE

REACTIONS (1)
  - PNEUMONIA [None]
